FAERS Safety Report 25523690 (Version 1)
Quarter: 2025Q3

REPORT INFORMATION
  Report Type: Spontaneous
  Country: US (occurrence: None)
  Receive Date: 20250703
  Receipt Date: 20250703
  Transmission Date: 20251020
  Serious: Yes (Disabling)
  Sender: FDA-CTU
  Company Number: None

PATIENT
  Age: 28 Year
  Sex: Male
  Weight: 60 kg

DRUGS (2)
  1. AMITRIPTYLINE [Suspect]
     Active Substance: AMITRIPTYLINE
  2. BUPROPION [Suspect]
     Active Substance: BUPROPION

REACTIONS (19)
  - Libido decreased [None]
  - Pudendal canal syndrome [None]
  - Thinking abnormal [None]
  - Constipation [None]
  - Diarrhoea [None]
  - Food allergy [None]
  - Histamine abnormal [None]
  - Hypohidrosis [None]
  - Alopecia [None]
  - Muscle atrophy [None]
  - Penile size reduced [None]
  - Premature ejaculation [None]
  - Organic erectile dysfunction [None]
  - Thirst decreased [None]
  - Appetite disorder [None]
  - Insomnia [None]
  - Cognitive disorder [None]
  - Anhedonia [None]
  - Depersonalisation/derealisation disorder [None]

NARRATIVE: CASE EVENT DATE: 19970708
